FAERS Safety Report 10061370 (Version 1)
Quarter: 2014Q2

REPORT INFORMATION
  Report Type: Report from Study
  Country: US (occurrence: US)
  Receive Date: 20140407
  Receipt Date: 20140407
  Transmission Date: 20141212
  Serious: Yes (Hospitalization)
  Sender: FDA-Public Use
  Company Number: US-JNJFOC-20140315461

PATIENT
  Sex: Male
  Weight: 102.06 kg

DRUGS (2)
  1. ZYTIGA [Suspect]
     Indication: PROSTATE CANCER
     Route: 048
     Dates: start: 20130311, end: 20140127
  2. PREDNISONE [Concomitant]
     Indication: NEOPLASM MALIGNANT
     Route: 048

REACTIONS (3)
  - Lymphadenopathy [Not Recovered/Not Resolved]
  - Prostate cancer [Not Recovered/Not Resolved]
  - Cough [Not Recovered/Not Resolved]
